FAERS Safety Report 7359113-7 (Version None)
Quarter: 2011Q1

REPORT INFORMATION
  Report Type: 
  Country: None (occurrence: None)
  Receive Date: 20110307
  Receipt Date: 20090820
  Transmission Date: 20110831
  Serious: Yes (Other)
  Sender: FDA-Public Use
  Company Number: UK-2009-00269

PATIENT
  Age: 74 Year
  Sex: Male

DRUGS (5)
  1. ALLOPURINOL [Concomitant]
  2. SIMVASTATIN [Suspect]
     Indication: PRODUCT USED FOR UNKNOWN INDICATION
  3. DIGOXIN [Concomitant]
  4. ADALAT [Concomitant]
  5. PERINDOPRIL [Concomitant]

REACTIONS (2)
  - ARTHRALGIA [None]
  - VISUAL FIELD DEFECT [None]
